FAERS Safety Report 5687515-3 (Version None)
Quarter: 2008Q1

REPORT INFORMATION
  Report Type: 
  Country: None (occurrence: None)
  Receive Date: 20080328
  Receipt Date: 20070717
  Transmission Date: 20080703
  Serious: Yes (Hospitalization)
  Sender: FDA-Public Use
  Company Number: US-BAYER-US-2006-037167

PATIENT
  Age: 22 Year
  Sex: Female
  Weight: 113 kg

DRUGS (1)
  1. MIRENA [Suspect]
     Indication: CONTRACEPTION
     Route: 015
     Dates: start: 20060815, end: 20061121

REACTIONS (7)
  - COMPLICATION OF DEVICE INSERTION [None]
  - COMPLICATION OF DEVICE REMOVAL [None]
  - DEVICE BREAKAGE [None]
  - ENDOMETRITIS [None]
  - IUCD COMPLICATION [None]
  - POST PROCEDURAL HAEMORRHAGE [None]
  - UTERINE CERVICAL LACERATION [None]
